FAERS Safety Report 21118743 (Version 1)
Quarter: 2022Q3

REPORT INFORMATION
  Report Type: Spontaneous
  Country: FI (occurrence: FI)
  Receive Date: 20220722
  Receipt Date: 20220722
  Transmission Date: 20221026
  Serious: Yes (Life-Threatening)
  Sender: FDA-Public Use
  Company Number: None

PATIENT
  Age: 58 Year
  Sex: Male

DRUGS (5)
  1. BUPRENORPHINE [Suspect]
     Active Substance: BUPRENORPHINE
     Indication: Pain
     Dates: start: 202204, end: 202206
  2. BISOPROLOL [Concomitant]
     Active Substance: BISOPROLOL
     Indication: Panic disorder
     Dosage: 2.5 MILLIGRAM DAILY; 2.5,MG,DAILY
     Dates: start: 2004
  3. LYRICA [Concomitant]
     Active Substance: PREGABALIN
     Indication: Pain
     Dosage: 600 MILLIGRAM DAILY; 600,MG,DAILY
     Dates: start: 2020
  4. CYMBALTA [Concomitant]
     Active Substance: DULOXETINE HYDROCHLORIDE
     Indication: Pain
     Dosage: 60 MILLIGRAM DAILY; 60,MG,DAILY
     Dates: start: 2020
  5. CLONAZEPAM [Concomitant]
     Active Substance: CLONAZEPAM
     Indication: Restless legs syndrome
     Dosage: TABLET (UNCOATED, ORAL)
     Route: 048
     Dates: start: 2020

REACTIONS (11)
  - Muscle spasms [Recovering/Resolving]
  - Urinary retention [Recovering/Resolving]
  - Weight decreased [Recovering/Resolving]
  - Pain [Recovering/Resolving]
  - Hyperaesthesia [Recovering/Resolving]
  - Vomiting [Recovering/Resolving]
  - Drug withdrawal syndrome [Recovering/Resolving]
  - Dysuria [Recovering/Resolving]
  - Gait inability [Recovering/Resolving]
  - Decreased appetite [Recovering/Resolving]
  - Dyspnoea [Recovering/Resolving]

NARRATIVE: CASE EVENT DATE: 20220501
